FAERS Safety Report 19056286 (Version 2)
Quarter: 2024Q4

REPORT INFORMATION
  Report Type: Report from Study
  Country: US (occurrence: US)
  Receive Date: 20210325
  Receipt Date: 20241021
  Transmission Date: 20250115
  Serious: Yes (Congenital Anomaly)
  Sender: UCB
  Company Number: US-UCBSA-2021012783

PATIENT
  Sex: Female

DRUGS (1)
  1. LEVETIRACETAM [Suspect]
     Active Substance: LEVETIRACETAM
     Indication: Epilepsy
     Dosage: UNK

REACTIONS (2)
  - Fallot^s tetralogy [Unknown]
  - Maternal exposure during pregnancy [Unknown]
